FAERS Safety Report 8775932 (Version 2)
Quarter: 2012Q4

REPORT INFORMATION
  Report Type: 
  Country: JP (occurrence: JP)
  Receive Date: 20120910
  Receipt Date: 20120921
  Transmission Date: 20130627
  Serious: Yes (Other)
  Sender: FDA-Public Use
  Company Number: JP-ASTRAZENECA-2012SE69229

PATIENT
  Age: 85 Year
  Sex: Female
  Weight: 35 kg

DRUGS (27)
  1. DIPRIVAN [Suspect]
     Indication: INDUCTION OF ANAESTHESIA
     Dosage: Number of separate dosages unknown
     Route: 042
  2. DIPRIVAN [Suspect]
     Indication: MAINTENANCE OF ANAESTHESIA
     Dosage: Number of separate dosages unknown
     Route: 042
  3. DIPRIVAN [Suspect]
     Indication: GENERAL ANAESTHESIA
     Dosage: Number of separate dosages unknown
     Route: 042
  4. DIPRIVAN [Suspect]
     Indication: INDUCTION OF ANAESTHESIA
     Route: 042
  5. DIPRIVAN [Suspect]
     Indication: MAINTENANCE OF ANAESTHESIA
     Route: 042
  6. DIPRIVAN [Suspect]
     Indication: GENERAL ANAESTHESIA
     Route: 042
  7. DIPRIVAN [Suspect]
     Indication: INDUCTION OF ANAESTHESIA
     Dosage: Number of separate dosages unknown
     Route: 042
  8. DIPRIVAN [Suspect]
     Indication: MAINTENANCE OF ANAESTHESIA
     Dosage: Number of separate dosages unknown
     Route: 042
  9. DIPRIVAN [Suspect]
     Indication: GENERAL ANAESTHESIA
     Dosage: Number of separate dosages unknown
     Route: 042
  10. DIPRIVAN [Suspect]
     Indication: INDUCTION OF ANAESTHESIA
     Dosage: Number of separate dosages unknown
     Route: 042
  11. DIPRIVAN [Suspect]
     Indication: MAINTENANCE OF ANAESTHESIA
     Dosage: Number of separate dosages unknown
     Route: 042
  12. DIPRIVAN [Suspect]
     Indication: GENERAL ANAESTHESIA
     Dosage: Number of separate dosages unknown
     Route: 042
  13. ANAPEINE [Suspect]
     Indication: ANALGESIC THERAPY
     Dosage: 2 mg/ml Number of separate dosages unknown
     Route: 008
  14. ANAPEINE [Suspect]
     Indication: ANALGESIC THERAPY
     Dosage: 2 mg/mL
     Route: 008
  15. ANAPEINE [Suspect]
     Indication: ANALGESIC THERAPY
     Dosage: 2 mg/mL Number of separate dosages unknown
     Route: 008
  16. MIDAZOLAM [Concomitant]
     Indication: INDUCTION OF ANAESTHESIA
     Dosage: Number of separate dosages unknown
     Route: 065
  17. ROCURONIUM BROMIDE [Concomitant]
     Indication: INDUCTION OF ANAESTHESIA
     Dosage: Number of separate dosages unknown
     Route: 065
  18. ROCURONIUM BROMIDE [Concomitant]
     Indication: INDUCTION OF ANAESTHESIA
     Dosage: Number of separate dosages unknown
     Route: 065
  19. ROCURONIUM BROMIDE [Concomitant]
     Indication: INDUCTION OF ANAESTHESIA
     Dosage: Number of separate dosages unknown
     Route: 065
  20. REMIFENTANIL HYDROCHLORIDE [Concomitant]
     Indication: MAINTENANCE OF ANAESTHESIA
     Route: 065
  21. FENTANYL [Concomitant]
     Indication: INDUCTION OF ANAESTHESIA
     Dosage: 2 mcg/mL
     Route: 065
  22. FENTANYL [Concomitant]
     Indication: INDUCTION OF ANAESTHESIA
     Dosage: Number of separate dosages unknown
     Route: 065
  23. FENTANYL [Concomitant]
     Indication: INDUCTION OF ANAESTHESIA
     Dosage: Number of separate dosages unknown
     Route: 065
  24. SEVOFLURANE [Concomitant]
     Indication: MAINTENANCE OF ANAESTHESIA
     Dosage: 0.5% - 1.0%
     Route: 065
  25. DOPAMINE [Concomitant]
     Route: 065
  26. LIDOCAINE [Concomitant]
     Indication: MAINTENANCE OF ANAESTHESIA
     Dosage: Number of separate dosages unknown
     Route: 065
  27. LANDIOLOL HYDROCHLORIDE [Concomitant]
     Route: 065

REACTIONS (2)
  - Stress cardiomyopathy [Recovered/Resolved]
  - Blood pressure decreased [Unknown]
